FAERS Safety Report 15652047 (Version 1)
Quarter: 2018Q4

REPORT INFORMATION
  Report Type: Other
  Country: HU (occurrence: HU)
  Receive Date: 20181123
  Receipt Date: 20181123
  Transmission Date: 20190205
  Serious: Yes (Hospitalization, Other)
  Sender: FDA-Public Use
  Company Number: HU-ACTELION-A-CH2018-182066

PATIENT
  Age: 68 Year
  Sex: Female
  Weight: 55.6 kg

DRUGS (6)
  1. LEFLUNOMID [Suspect]
     Active Substance: LEFLUNOMIDE
     Indication: RHEUMATOID ARTHRITIS
     Dosage: 20 M, OD
     Route: 048
     Dates: start: 20070731, end: 20170213
  2. ALPRESTIL [Concomitant]
     Indication: SKIN ULCER
     Dosage: 20 MCG, 5 INFUSTIONS EVERY TWO MONTHS
     Route: 042
     Dates: start: 20170210, end: 20170214
  3. MEDROL [Concomitant]
     Active Substance: METHYLPREDNISOLONE
     Indication: RHEUMATOID ARTHRITIS
     Dosage: 2 MG, OD
     Route: 048
     Dates: start: 20041205
  4. CHINOTAL [Concomitant]
     Active Substance: PENTOXIFYLLINE
     Indication: RAYNAUD^S PHENOMENON
     Dosage: 400 MG, BID
     Route: 048
     Dates: start: 20041205
  5. TRACLEER [Suspect]
     Active Substance: BOSENTAN
     Indication: SCLERODERMA ASSOCIATED DIGITAL ULCER
     Dosage: 62.5 MG, BID
     Route: 048
     Dates: start: 201701, end: 20170213
  6. NOACID [Concomitant]
     Active Substance: ALUMINUM HYDROXIDE
     Indication: GASTROOESOPHAGEAL REFLUX DISEASE
     Dosage: 40 MG, OD
     Route: 048
     Dates: start: 20051014

REACTIONS (9)
  - Alanine aminotransferase increased [Recovered/Resolved]
  - Concomitant disease aggravated [Recovered/Resolved]
  - Aspartate aminotransferase increased [Recovered/Resolved]
  - Gamma-glutamyltransferase increased [Recovered/Resolved]
  - Oedema peripheral [Recovered/Resolved]
  - Leukopenia [Recovered/Resolved]
  - Vertigo [Recovered/Resolved]
  - Hepatic enzyme increased [Recovered/Resolved]
  - Blood alkaline phosphatase increased [Recovered/Resolved]

NARRATIVE: CASE EVENT DATE: 201701
